FAERS Safety Report 15221947 (Version 2)
Quarter: 2018Q4

REPORT INFORMATION
  Report Type: Spontaneous
  Country: CA (occurrence: CA)
  Receive Date: 20180731
  Receipt Date: 20181018
  Transmission Date: 20190204
  Serious: Yes (Hospitalization)
  Sender: FDA-Public Use
  Company Number: CA-PFIZER INC-2018306130

PATIENT
  Age: 25 Year
  Sex: Female

DRUGS (4)
  1. POTASSIUM CHLORIDE. [Suspect]
     Active Substance: POTASSIUM CHLORIDE
     Indication: ECTOPIC PREGNANCY
     Dosage: 5 ML, UNK
  2. METHOTREXATE SODIUM. [Suspect]
     Active Substance: METHOTREXATE SODIUM
     Indication: ECTOPIC PREGNANCY
     Dosage: 1 MG/KG, 1X/DAY (TWO COURSES, ALTERNATING WITH LEUCOVORIN)
  3. LEUCOVORIN. [Suspect]
     Active Substance: LEUCOVORIN
     Indication: ECTOPIC PREGNANCY
     Dosage: 0.1 MG/KG, 1X/DAY
  4. GELFOAM [Concomitant]
     Active Substance: GELATIN\THROMBIN HUMAN
     Indication: THERAPEUTIC EMBOLISATION
     Dosage: UNK

REACTIONS (2)
  - Arteriovenous malformation [Unknown]
  - Drug ineffective for unapproved indication [Unknown]
